FAERS Safety Report 20595675 (Version 2)
Quarter: 2022Q2

REPORT INFORMATION
  Report Type: Spontaneous
  Country: US (occurrence: US)
  Receive Date: 20220315
  Receipt Date: 20220415
  Transmission Date: 20220721
  Serious: No
  Sender: FDA-Public Use
  Company Number: US-PFIZER INC-202200286188

PATIENT
  Sex: Female

DRUGS (3)
  1. SOMATROPIN [Suspect]
     Active Substance: SOMATROPIN
     Indication: Hypopituitarism
     Dosage: UNK
  2. SOMATROPIN [Suspect]
     Active Substance: SOMATROPIN
     Indication: Endocrine neoplasm
  3. SOMATROPIN [Suspect]
     Active Substance: SOMATROPIN
     Indication: Nervous system neoplasm

REACTIONS (2)
  - Off label use [Unknown]
  - Device leakage [Unknown]
